FAERS Safety Report 8914052 (Version 1)
Quarter: 2012Q4

REPORT INFORMATION
  Report Type: 
  Country: DE (occurrence: DE)
  Receive Date: 20121116
  Receipt Date: 20121116
  Transmission Date: 20130627
  Serious: Yes (Other)
  Sender: FDA-Public Use
  Company Number: DE-WATSON-2012-19058

PATIENT
  Age: 45 Year
  Sex: Male
  Weight: 71 kg

DRUGS (5)
  1. SIMVASTATIN (UNKNOWN) [Suspect]
     Indication: CORONARY ARTERY DISEASE
     Dosage: daily dose: 40 Mg millgram(s) every Days 1040Mg milligram(s) 40Mg milligram(s) 1 1Day
     Route: 048
     Dates: start: 20120329, end: 20120430
  2. BRILIQUE [Suspect]
     Indication: CORONARY ARTERIAL STENT INSERTION
     Dosage: ^daily dose: 180 Mg millgram(s) every Days^ [ 4680 Mg milligram(s) { 90 Mg milligram(s), 2 in 1 Day
     Route: 048
     Dates: start: 20120329
  3. ASS [Concomitant]
     Indication: CORONARY ARTERY DISEASE
     Dosage: daily dose: 100 Mg millgram(s) every Days 2600Mg milligram(s) 100Mg milligram(s) 1 1Day
     Route: 048
     Dates: start: 20120329
  4. METOPROLOL [Concomitant]
     Indication: HYPERTENSION
     Dosage: daily dose: 95 Mg millgram(s) every Days 47.5Mg milligram(s) 2 1Day
     Route: 048
     Dates: start: 20120329
  5. RAMIPRIL [Concomitant]
     Indication: HYPERTENSION
     Dosage: daily dose: 5 Mg millgram(s) every Days 130Mg milligram(s) 5Mg milligram(s) 1 1Day
     Route: 048
     Dates: start: 20120329

REACTIONS (4)
  - Drug level increased [Recovering/Resolving]
  - Blood creatine phosphokinase increased [Recovering/Resolving]
  - Transaminases increased [Recovering/Resolving]
  - Pain in extremity [Recovering/Resolving]
